FAERS Safety Report 13742004 (Version 1)
Quarter: 2017Q3

REPORT INFORMATION
  Report Type: Spontaneous
  Country: US (occurrence: US)
  Receive Date: 20170711
  Receipt Date: 20170711
  Transmission Date: 20171127
  Serious: No
  Sender: FDA-Public Use
  Company Number: US-IPSEN BIOPHARMACEUTICALS, INC.-2014-6372

PATIENT
  Sex: Female
  Weight: 72 kg

DRUGS (1)
  1. DYSPORT [Suspect]
     Active Substance: ABOBOTULINUMTOXINA
     Indication: SKIN WRINKLING
     Dosage: 50UNITS
     Route: 030
     Dates: start: 20140929, end: 20140929

REACTIONS (3)
  - Drug effect decreased [Unknown]
  - Product storage error [Unknown]
  - Product preparation error [Unknown]
